FAERS Safety Report 4801915-2 (Version None)
Quarter: 2005Q4

REPORT INFORMATION
  Report Type: 
  Country: None (occurrence: None)
  Receive Date: 20051014
  Receipt Date: 20051014
  Transmission Date: 20060501
  Serious: Yes (Other)
  Sender: FDA-Public Use
  Company Number: None

PATIENT
  Age: 65 Year
  Sex: Female
  Weight: 59.4212 kg

DRUGS (7)
  1. LEVAQUIN [Suspect]
     Indication: LIPOMA EXCISION
     Dosage: 500 MG IV 1 DOSE ONLY
     Route: 042
     Dates: start: 20050928
  2. LEVAQUIN [Suspect]
     Indication: PROPHYLAXIS
     Dosage: 500 MG IV 1 DOSE ONLY
     Route: 042
     Dates: start: 20050928
  3. PREDNISONE TAB [Concomitant]
  4. METHOTREXATE [Concomitant]
  5. TOPROL-XL [Concomitant]
  6. PRILOSEC [Concomitant]
  7. REMICADE [Concomitant]

REACTIONS (2)
  - INFUSION RELATED REACTION [None]
  - RASH PRURITIC [None]
